FAERS Safety Report 8285278-9 (Version None)
Quarter: 2012Q2

REPORT INFORMATION
  Report Type: 
  Country: None (occurrence: None)
  Receive Date: 20120413
  Receipt Date: 20120409
  Transmission Date: 20120825
  Serious: Yes (Hospitalization, Other)
  Sender: FDA-Public Use
  Company Number: PHHY2011JP76097

PATIENT
  Sex: Male
  Weight: 59 kg

DRUGS (6)
  1. AFINITOR [Suspect]
     Indication: METASTATIC RENAL CELL CARCINOMA
     Dosage: 10 MG, DAILY
     Route: 048
     Dates: start: 20110520, end: 20110611
  2. AFINITOR [Suspect]
     Dosage: 10 MG, DAILY
     Route: 048
     Dates: start: 20110617, end: 20110701
  3. AFINITOR [Suspect]
     Dosage: 10 MG, DAILY
     Route: 048
     Dates: start: 20110902, end: 20111012
  4. FUROSEMIDE [Concomitant]
     Indication: METASTATIC RENAL CELL CARCINOMA
     Dosage: 20 MG, UNK
     Route: 048
     Dates: start: 20110601
  5. AFINITOR [Suspect]
     Dosage: 10 MG, DAILY
     Route: 048
     Dates: start: 20110721, end: 20110728
  6. GRACEVIT [Suspect]
     Dosage: 100 MG, DAILY
     Route: 048
     Dates: start: 20110717, end: 20110728

REACTIONS (8)
  - BLADDER TAMPONADE [None]
  - PYELONEPHRITIS ACUTE [None]
  - INFLAMMATION [None]
  - C-REACTIVE PROTEIN INCREASED [None]
  - PLATELET COUNT DECREASED [None]
  - PSEUDOMEMBRANOUS COLITIS [None]
  - COSTOVERTEBRAL ANGLE TENDERNESS [None]
  - PYREXIA [None]
